FAERS Safety Report 7177325-2 (Version None)
Quarter: 2010Q4

REPORT INFORMATION
  Report Type: 
  Country: None (occurrence: None)
  Receive Date: 20101220
  Receipt Date: 20101213
  Transmission Date: 20110411
  Serious: Yes (Hospitalization)
  Sender: FDA-Public Use
  Company Number: IN-PFIZER INC-2010173747

PATIENT
  Age: 54 Year
  Sex: Female

DRUGS (8)
  1. RISPERIDONE [Suspect]
     Indication: PSYCHOTIC BEHAVIOUR
     Dosage: UNK
     Route: 050
  2. RISPERIDONE [Suspect]
     Indication: DEPRESSION
  3. SERTRALINE HYDROCHLORIDE [Suspect]
     Indication: DEPRESSIVE SYMPTOM
     Dosage: 150 MG, UNK
     Route: 050
  4. VENLAFAXINE [Suspect]
     Indication: DEPRESSIVE SYMPTOM
     Dosage: 300 MG, UNK
     Route: 050
  5. LITHIUM CARBONATE [Suspect]
     Indication: DEPRESSIVE SYMPTOM
     Dosage: 300 MG, UNK
     Route: 050
  6. LITHIUM CARBONATE [Suspect]
     Dosage: 600 MG, UNK
     Route: 050
  7. LITHIUM CARBONATE [Suspect]
     Dosage: 900 MG, UNK
     Route: 050
  8. QUETIAPINE [Suspect]
     Indication: DEPRESSIVE SYMPTOM
     Dosage: 125 MG, UNK
     Route: 050

REACTIONS (3)
  - DRUG INEFFECTIVE [None]
  - DRUG RASH WITH EOSINOPHILIA AND SYSTEMIC SYMPTOMS [None]
  - EXTRAPYRAMIDAL DISORDER [None]
